FAERS Safety Report 19435714 (Version 2)
Quarter: 2022Q2

REPORT INFORMATION
  Report Type: Other
  Country: US (occurrence: None)
  Receive Date: 20210618
  Receipt Date: 20220626
  Transmission Date: 20220721
  Serious: Yes (Other)
  Sender: FDA-Public Use
  Company Number: US-ROCHE-2449991

PATIENT
  Sex: Female
  Weight: 88.984 kg

DRUGS (15)
  1. ACTEMRA [Suspect]
     Active Substance: TOCILIZUMAB
     Indication: Rheumatoid arthritis
     Dosage: ONCE EVERY 10 DAYS
     Route: 058
  2. ACTEMRA [Suspect]
     Active Substance: TOCILIZUMAB
  3. ACTEMRA [Suspect]
     Active Substance: TOCILIZUMAB
  4. METOPROLOL SUCCINATE [Concomitant]
     Active Substance: METOPROLOL SUCCINATE
     Route: 048
  5. AMLODIPINE [Concomitant]
     Active Substance: AMLODIPINE BESYLATE
     Route: 048
  6. VITAMIN D3 [Concomitant]
     Active Substance: CHOLECALCIFEROL
  7. COZAAR [Concomitant]
     Active Substance: LOSARTAN POTASSIUM
     Route: 048
  8. DIETARY SUPPLEMENT [Concomitant]
     Active Substance: DIETARY SUPPLEMENT
     Route: 048
  9. DIETARY SUPPLEMENT\HERBALS\MILK THISTLE [Concomitant]
     Active Substance: DIETARY SUPPLEMENT\HERBALS\MILK THISTLE
     Route: 048
  10. OMEGA OIL [Concomitant]
     Route: 048
  11. VITAMIN B12 [Concomitant]
     Active Substance: CYANOCOBALAMIN
     Route: 048
  12. VITAMIN C [Concomitant]
     Active Substance: ASCORBIC ACID
     Route: 048
  13. ZINC [Concomitant]
     Active Substance: ZINC
     Route: 048
  14. LYRICA [Concomitant]
     Active Substance: PREGABALIN
     Route: 048
  15. HYDROCODONE [Concomitant]
     Active Substance: HYDROCODONE
     Route: 048

REACTIONS (2)
  - Off label use [Unknown]
  - Blindness [Unknown]
